FAERS Safety Report 13174526 (Version 2)
Quarter: 2017Q1

REPORT INFORMATION
  Report Type: Report from Study
  Country: US (occurrence: US)
  Receive Date: 20170201
  Receipt Date: 20170213
  Transmission Date: 20170428
  Serious: Yes (Hospitalization, Other)
  Sender: FDA-Public Use
  Company Number: US-BAYER-2017-017595

PATIENT
  Sex: Male

DRUGS (10)
  1. LEVETIRACETAM. [Concomitant]
     Active Substance: LEVETIRACETAM
  2. ZOFRAN [Concomitant]
     Active Substance: ONDANSETRON HYDROCHLORIDE
  3. NEXAVAR [Suspect]
     Active Substance: SORAFENIB
     Indication: BONE CANCER
     Dosage: 400 MG, BID
     Route: 048
     Dates: start: 201510
  4. AMLODIPINE BESYLATE. [Concomitant]
     Active Substance: AMLODIPINE BESYLATE
  5. NEXAVAR [Suspect]
     Active Substance: SORAFENIB
     Indication: BONE CANCER
     Dosage: 400 MG, BID
     Route: 048
     Dates: start: 201612
  6. VITAMIN B6 [Concomitant]
     Active Substance: PYRIDOXINE HYDROCHLORIDE
  7. XGEVA [Concomitant]
     Active Substance: DENOSUMAB
  8. KLONOPIN [Concomitant]
     Active Substance: CLONAZEPAM
  9. CORTISONE ACETATE. [Concomitant]
     Active Substance: CORTISONE ACETATE
  10. PAZOPANIB [Concomitant]
     Active Substance: PAZOPANIB

REACTIONS (17)
  - Brain oedema [None]
  - Adverse drug reaction [None]
  - Abdominal pain upper [None]
  - Diarrhoea [None]
  - Fatigue [None]
  - Brain neoplasm [None]
  - Discomfort [None]
  - Off label use [None]
  - Rash [None]
  - Headache [None]
  - Abdominal pain [None]
  - Abdominal discomfort [None]
  - Tumour compression [None]
  - Hypoaesthesia [None]
  - Abasia [None]
  - Pain in extremity [None]
  - Drug dose omission [None]
